FAERS Safety Report 9468323 (Version 1)
Quarter: 2013Q3

REPORT INFORMATION
  Report Type: Spontaneous
  Country: IT (occurrence: IT)
  Receive Date: 20130821
  Receipt Date: 20130821
  Transmission Date: 20140515
  Serious: Yes (Hospitalization)
  Sender: FDA-Public Use
  Company Number: IT-ASTRAZENECA-2013SE63386

PATIENT
  Age: 3030 Week
  Sex: Male

DRUGS (8)
  1. ATENOLOL [Suspect]
     Indication: HYPERTENSION
     Route: 048
     Dates: start: 20070101, end: 20130620
  2. KCL RETARD [Suspect]
     Indication: HYPERTENSION
     Dosage: 600MG PROLONGED RELEASE TABLETS ONE DAILY
     Route: 048
     Dates: start: 20070101, end: 20130620
  3. DRONEDARONE [Suspect]
     Indication: ATRIAL FIBRILLATION
     Route: 048
     Dates: start: 20070101, end: 20130620
  4. LASIX [Concomitant]
  5. COUMADIN [Concomitant]
  6. CRESTOR [Concomitant]
     Indication: DYSLIPIDAEMIA
  7. PANTORC [Concomitant]
  8. FELODIPINE [Concomitant]

REACTIONS (2)
  - Nodal arrhythmia [Recovered/Resolved]
  - Hyperkalaemia [Recovered/Resolved]
